FAERS Safety Report 22282622 (Version 2)
Quarter: 2024Q3

REPORT INFORMATION
  Report Type: Spontaneous
  Country: RU (occurrence: RU)
  Receive Date: 20230504
  Receipt Date: 20240726
  Transmission Date: 20241016
  Serious: Yes (Other)
  Sender: RANBAXY
  Company Number: RU-SUN PHARMACEUTICAL INDUSTRIES LTD-2023R1-386819

PATIENT
  Age: 48 Year
  Sex: Female

DRUGS (2)
  1. AZITHROMYCIN [Suspect]
     Active Substance: AZITHROMYCIN
     Indication: SARS-CoV-2 RNA
     Dosage: UNK
     Route: 065
  2. UMIFENOVIR [Suspect]
     Active Substance: UMIFENOVIR
     Indication: SARS-CoV-2 RNA
     Dosage: UNK
     Route: 065

REACTIONS (1)
  - Drug ineffective [Unknown]
